FAERS Safety Report 5767707-5 (Version None)
Quarter: 2008Q2

REPORT INFORMATION
  Report Type: 
  Country: None (occurrence: None)
  Receive Date: 20080612
  Receipt Date: 20080609
  Transmission Date: 20081010
  Serious: Yes (Hospitalization)
  Sender: FDA-Public Use
  Company Number: GB-PFIZER INC-2006126219

PATIENT
  Sex: Male
  Weight: 83 kg

DRUGS (5)
  1. SU-011,248 [Suspect]
     Indication: RENAL CELL CARCINOMA
     Route: 048
  2. WARFARIN SODIUM [Concomitant]
     Route: 048
  3. ACETAMINOPHEN W/ CODEINE [Concomitant]
     Route: 048
  4. SENOKOT [Concomitant]
     Route: 048
  5. LACTULOSE [Concomitant]
     Route: 048

REACTIONS (4)
  - FACIAL BONES FRACTURE [None]
  - HEAD INJURY [None]
  - ORTHOSTATIC HYPOTENSION [None]
  - SYNCOPE [None]
